FAERS Safety Report 6299959-X (Version None)
Quarter: 2009Q3

REPORT INFORMATION
  Report Type: 
  Country: None (occurrence: None)
  Receive Date: 20090806
  Receipt Date: 20090727
  Transmission Date: 20100115
  Serious: Yes (Other)
  Sender: FDA-Public Use
  Company Number: FR-WYE-H10296209

PATIENT
  Age: 60 Year
  Sex: Female

DRUGS (1)
  1. PANTOPRAZOLE SODIUM [Suspect]
     Route: 048
     Dates: start: 20090715, end: 20090718

REACTIONS (3)
  - CONJUNCTIVAL HAEMORRHAGE [None]
  - HAEMATOMA [None]
  - HAEMORRHAGE [None]
